FAERS Safety Report 14065998 (Version 1)
Quarter: 2017Q4

REPORT INFORMATION
  Report Type: Spontaneous
  Country: US (occurrence: US)
  Receive Date: 20171009
  Receipt Date: 20171009
  Transmission Date: 20180321
  Serious: No
  Sender: FDA-Public Use
  Company Number: US-ASTRAZENECA-2017SF01370

PATIENT
  Age: 841 Month
  Sex: Female
  Weight: 81.2 kg

DRUGS (5)
  1. LISINOPRIL. [Suspect]
     Active Substance: LISINOPRIL
     Indication: HYPERTENSION
     Dosage: DAILY
     Route: 048
  2. MOVANTIK [Suspect]
     Active Substance: NALOXEGOL OXALATE
     Indication: PAIN
     Dosage: 25 MILLIGRAMS, THREE TO FOUR TIMES A WEEK
     Route: 048
     Dates: end: 201709
  3. MOVANTIK [Suspect]
     Active Substance: NALOXEGOL OXALATE
     Indication: PAIN
     Route: 048
     Dates: start: 201612
  4. MOVANTIK [Suspect]
     Active Substance: NALOXEGOL OXALATE
     Indication: CONSTIPATION
     Route: 048
     Dates: start: 201612
  5. MOVANTIK [Suspect]
     Active Substance: NALOXEGOL OXALATE
     Indication: CONSTIPATION
     Dosage: 25 MILLIGRAMS, THREE TO FOUR TIMES A WEEK
     Route: 048
     Dates: end: 201709

REACTIONS (24)
  - Pain [Recovered/Resolved]
  - Hiatus hernia [Not Recovered/Not Resolved]
  - Bowel movement irregularity [Recovered/Resolved]
  - Therapy cessation [Unknown]
  - Flatulence [Unknown]
  - Mitral valve prolapse [Unknown]
  - Dyspepsia [Recovered/Resolved]
  - Cough [Recovered/Resolved]
  - Off label use [Recovered/Resolved]
  - Chest pain [Unknown]
  - Condition aggravated [Unknown]
  - Asthma [Unknown]
  - Hypertension [Unknown]
  - Teething [Not Recovered/Not Resolved]
  - Constipation [Unknown]
  - Eructation [Unknown]
  - Eating disorder [Unknown]
  - Abdominal discomfort [Unknown]
  - Tooth abscess [Not Recovered/Not Resolved]
  - Drug dose omission [Unknown]
  - Amnesia [Not Recovered/Not Resolved]
  - Gastric disorder [Recovered/Resolved]
  - Blood cholesterol increased [Unknown]
  - Joint injury [Recovered/Resolved]

NARRATIVE: CASE EVENT DATE: 201708
